FAERS Safety Report 10101737 (Version 1)
Quarter: 2014Q2

REPORT INFORMATION
  Report Type: Spontaneous
  Country: US (occurrence: None)
  Receive Date: 20140423
  Receipt Date: 20140423
  Transmission Date: 20141212
  Serious: Yes (Disabling)
  Sender: FDA-Public Use
  Company Number: None

PATIENT
  Age: 47 Year
  Sex: Male
  Weight: 73.48 kg

DRUGS (1)
  1. OXYCONTIN [Suspect]
     Indication: PAIN
     Dosage: UP TO 4 DAILY  3 TO 4 DAILY SWALLOWED?12+ YEARS
     Route: 048

REACTIONS (2)
  - Dry mouth [None]
  - Thinking abnormal [None]
